FAERS Safety Report 6744988-2 (Version None)
Quarter: 2010Q2

REPORT INFORMATION
  Report Type: 
  Country: None (occurrence: None)
  Receive Date: 20100527
  Receipt Date: 20100520
  Transmission Date: 20101027
  Serious: Yes (Hospitalization)
  Sender: FDA-Public Use
  Company Number: US-ABBOTT-10P-163-0646578-00

PATIENT
  Weight: 52.21 kg

DRUGS (3)
  1. ZEMPLAR [Suspect]
     Indication: NEPHROPATHY
     Dosage: DOESN'T REMEMBER DOSE
     Dates: start: 20080101
  2. NIFEDIPINE [Concomitant]
     Indication: HYPERTENSION
  3. ARIMIDEX [Concomitant]
     Indication: NEPHROPATHY

REACTIONS (4)
  - ARRHYTHMIA [None]
  - DYSPNOEA [None]
  - PALPITATIONS [None]
  - PERICARDIAL EFFUSION [None]
